FAERS Safety Report 7250024-4 (Version None)
Quarter: 2011Q1

REPORT INFORMATION
  Report Type: 
  Country: None (occurrence: None)
  Receive Date: 20110128
  Receipt Date: 20110118
  Transmission Date: 20110831
  Serious: Yes (Hospitalization, Other)
  Sender: FDA-Public Use
  Company Number: FR-PFIZER INC-2009285428

PATIENT
  Age: 56 Year
  Sex: Male

DRUGS (18)
  1. LYRICA [Suspect]
     Dosage: UNK
     Route: 048
     Dates: end: 20090616
  2. MAG 2 [Suspect]
     Dosage: UNK
     Route: 048
  3. VITAMIN B1 AND B6 [Suspect]
     Dosage: UNK
     Route: 048
  4. ISOPTIN [Suspect]
     Dosage: UNK
     Route: 048
  5. RIVOTRIL [Suspect]
     Dosage: UNK
     Route: 048
  6. VANCOMYCIN [Suspect]
     Dosage: UNK
     Route: 042
     Dates: start: 20090616, end: 20090702
  7. NICOPATCH [Suspect]
     Dosage: 21 MG/24H, UNK
     Route: 062
  8. NEXIUM [Suspect]
     Dosage: UNK
     Route: 048
  9. TERCIAN [Suspect]
     Dosage: UNK
     Route: 048
     Dates: end: 20090616
  10. LEDERFOLINE [Suspect]
     Dosage: UNK
     Route: 048
  11. TRUVADA [Suspect]
     Indication: HIV INFECTION
     Dosage: UNK
     Route: 048
     Dates: start: 20090604
  12. DOLIPRANE [Suspect]
     Dosage: UNK G, UNK
     Route: 048
  13. ISENTRESS [Suspect]
     Indication: HIV INFECTION
     Dosage: UNK
     Route: 048
     Dates: start: 20090604
  14. CLAFORAN [Suspect]
     Dosage: UNK
     Route: 048
     Dates: start: 20090529, end: 20090608
  15. ZYPREXA [Suspect]
     Dosage: UNK
     Route: 048
  16. FLAGYL [Suspect]
     Dosage: UNK
     Route: 048
     Dates: start: 20090529, end: 20090608
  17. IMOVANE [Suspect]
     Dosage: UNK
     Route: 048
  18. SERETIDE [Suspect]
     Dosage: UNK
     Route: 055

REACTIONS (1)
  - THROMBOCYTOPENIA [None]
